FAERS Safety Report 9350739 (Version 2)
Quarter: 2013Q3

REPORT INFORMATION
  Report Type: Report from Study
  Country: BR (occurrence: BR)
  Receive Date: 20130617
  Receipt Date: 20130909
  Transmission Date: 20140515
  Serious: Yes (Death, Life-Threatening, Hospitalization, Disabling, Other)
  Sender: FDA-Public Use
  Company Number: PHHY2013BR061061

PATIENT
  Age: 78 Year
  Sex: Male

DRUGS (6)
  1. EXELON PATCH [Suspect]
     Indication: DEMENTIA ALZHEIMER^S TYPE
     Dosage: 9.5 MG, DAILY
     Route: 062
  2. RISPERIDONE [Concomitant]
     Indication: DEMENTIA ALZHEIMER^S TYPE
     Dosage: 2 DF, DAILY
     Route: 048
     Dates: start: 2011
  3. GARDENAL//PHENOBARBITAL [Concomitant]
     Indication: CONVULSION
     Dosage: 1 DF, DAILY
     Route: 048
  4. DENYL//CITALOPRAM HYDROBROMIDE [Concomitant]
     Indication: ANTIDEPRESSANT THERAPY
     Dosage: 1 DF, DAILY
     Route: 048
     Dates: start: 2011
  5. ALOIS [Concomitant]
     Dosage: 2 DF, DAILY
     Route: 048
     Dates: start: 2011
  6. AKINETON//BIPERIDEN HYDROCHLORIDE [Concomitant]
     Indication: DEMENTIA ALZHEIMER^S TYPE
     Dosage: 1 DF, DAILY
     Route: 048
     Dates: start: 2011

REACTIONS (6)
  - Multi-organ failure [Fatal]
  - Cerebrovascular accident [Fatal]
  - Hypokinesia [Fatal]
  - Performance status decreased [Fatal]
  - Pneumonia [Fatal]
  - Dementia Alzheimer^s type [Fatal]
